FAERS Safety Report 15146347 (Version 1)
Quarter: 2018Q3

REPORT INFORMATION
  Report Type: Spontaneous
  Country: US (occurrence: US)
  Receive Date: 20180715
  Receipt Date: 20180715
  Transmission Date: 20181010
  Serious: No
  Sender: FDA-Public Use
  Company Number: US-JNJFOC-20180637782

PATIENT

DRUGS (2)
  1. ZYRTEC [Suspect]
     Active Substance: CETIRIZINE HYDROCHLORIDE
     Indication: ALLERGY TO ANIMAL
     Route: 065
  2. ZYRTEC [Suspect]
     Active Substance: CETIRIZINE HYDROCHLORIDE
     Route: 065

REACTIONS (4)
  - Product use in unapproved indication [Unknown]
  - Therapeutic response unexpected [Unknown]
  - Relaxation therapy [Unknown]
  - Overdose [Unknown]
